FAERS Safety Report 7929711-8 (Version None)
Quarter: 2011Q4

REPORT INFORMATION
  Report Type: 
  Country: None (occurrence: None)
  Receive Date: 20111121
  Receipt Date: 20111111
  Transmission Date: 20120403
  Serious: Yes (Hospitalization)
  Sender: FDA-Public Use
  Company Number: JP-EISAI INC-E2090-01814-SPO-JP

PATIENT
  Sex: Female

DRUGS (18)
  1. ZONISAMIDE [Suspect]
     Route: 048
     Dates: start: 20100924, end: 20101005
  2. GLYCEOL [Concomitant]
     Indication: BRAIN OEDEMA
     Dosage: 200 MILLILITRE/DAY
     Dates: start: 20100901, end: 20100921
  3. RADICUT [Concomitant]
     Dates: start: 20100831, end: 20100903
  4. FRAGMIN [Concomitant]
     Dosage: 3 IU (1,000)/DAY
     Dates: start: 20100911, end: 20101120
  5. EPHEDRINE HYDROCHLORIDE [Concomitant]
  6. DEPAKENE [Concomitant]
     Dates: start: 20101005, end: 20101105
  7. NICARDIPINE HCL [Concomitant]
     Dates: start: 20100807, end: 20100810
  8. MAGNESOL [Concomitant]
     Indication: ECLAMPSIA
     Dosage: 100 MILLILITRE/DAY
     Dates: start: 20100807, end: 20100810
  9. PHENYTOIN SODIUM CAP [Suspect]
     Route: 048
     Dates: start: 20100831, end: 20100901
  10. MARCAINE [Concomitant]
  11. DIAZEPAM [Concomitant]
     Indication: ECLAMPSIA
     Dates: start: 20100807, end: 20100810
  12. PHENYLEPHRINE HYDROCHLORIDE [Concomitant]
  13. APRESOLINE [Concomitant]
     Route: 048
     Dates: start: 20100807, end: 20100810
  14. MIDAZOLAM [Concomitant]
  15. PHENYTOIN SODIUM CAP [Suspect]
     Route: 048
     Dates: start: 20100902, end: 20100913
  16. LASIX [Concomitant]
     Dates: start: 20100807, end: 20100810
  17. MANNITOL [Concomitant]
     Dates: start: 20100806, end: 20100810
  18. TEGRETOL [Suspect]
     Dates: start: 20100913, end: 20100924

REACTIONS (4)
  - PYREXIA [None]
  - GENERALISED ERYTHEMA [None]
  - HEPATIC FUNCTION ABNORMAL [None]
  - LYMPHADENOPATHY [None]
